FAERS Safety Report 18116358 (Version 2)
Quarter: 2020Q3

REPORT INFORMATION
  Report Type: Spontaneous
  Country: NO (occurrence: NO)
  Receive Date: 20200805
  Receipt Date: 20200902
  Transmission Date: 20201103
  Serious: Yes (Death)
  Sender: FDA-Public Use
  Company Number: NVSC2020NO217252

PATIENT
  Age: 26 Year
  Sex: Male

DRUGS (2)
  1. ALCOHOL. [Suspect]
     Active Substance: ALCOHOL
     Indication: PRODUCT USED FOR UNKNOWN INDICATION
     Dosage: 8.8 MG/100ML
     Route: 065
  2. QUETIAPINE. [Suspect]
     Active Substance: QUETIAPINE
     Indication: PRODUCT USED FOR UNKNOWN INDICATION
     Dosage: 18 MG/L CONCENTRATION IN FEMORAL BLOOD
     Route: 065

REACTIONS (2)
  - Poisoning [Fatal]
  - Toxicity to various agents [Fatal]
